FAERS Safety Report 5665115-9 (Version None)
Quarter: 2008Q1

REPORT INFORMATION
  Report Type: 
  Country: None (occurrence: None)
  Receive Date: 20080314
  Receipt Date: 20080305
  Transmission Date: 20080703
  Serious: Yes (Other)
  Sender: FDA-Public Use
  Company Number: BR-PFIZER INC-2008021288

PATIENT
  Sex: Female

DRUGS (2)
  1. PROVERA [Suspect]
     Indication: HORMONE REPLACEMENT THERAPY
     Dosage: TEXT:VARIED FROM 10MG TO 2.5MG DAILY
     Route: 048
  2. ESTROGENS [Concomitant]
     Indication: HORMONE REPLACEMENT THERAPY
     Dosage: TEXT:VARIED FROM 4MG TO 10MG DAILY

REACTIONS (4)
  - ALOPECIA [None]
  - BLOOD OESTROGEN DECREASED [None]
  - HIRSUTISM [None]
  - PRURITUS [None]
